FAERS Safety Report 10011303 (Version 1)
Quarter: 2014Q1

REPORT INFORMATION
  Report Type: Spontaneous
  Country: SZ (occurrence: None)
  Receive Date: 20140311
  Receipt Date: 20140311
  Transmission Date: 20141002
  Serious: Yes (Death, Hospitalization)
  Sender: FDA-Public Use
  Company Number: IPC201402-000103

PATIENT
  Age: 41 Year
  Sex: Male

DRUGS (6)
  1. ALLOPURINOL (ALLOPURINOL) (ALLOPURINOL) [Suspect]
  2. COLCHICINE [Suspect]
  3. ACETAMINOPHEN [Suspect]
  4. ACEMETACIN [Suspect]
  5. ALCOHOL [Suspect]
  6. MORPHINE [Suspect]
     Indication: ANALGESIC THERAPY

REACTIONS (21)
  - Anaemia [None]
  - Melaena [None]
  - Renal failure acute [None]
  - Hypoglycaemia [None]
  - Hepatic failure [None]
  - Metabolic acidosis [None]
  - Hepatitis acute [None]
  - Pancreatitis [None]
  - Gastrointestinal haemorrhage [None]
  - Pancytopenia [None]
  - Coagulopathy [None]
  - Multi-organ failure [None]
  - Overdose [None]
  - Poisoning [None]
  - Vomiting [None]
  - Diarrhoea [None]
  - Abdominal pain [None]
  - Headache [None]
  - Exposure via ingestion [None]
  - Completed suicide [None]
  - Intentional self-injury [None]
